FAERS Safety Report 19206232 (Version 1)
Quarter: 2021Q2

REPORT INFORMATION
  Report Type: Spontaneous
  Country: US (occurrence: US)
  Receive Date: 20210430
  Receipt Date: 20210430
  Transmission Date: 20210717
  Serious: Yes (Death)
  Sender: FDA-Public Use
  Company Number: None

PATIENT
  Age: 84 Year
  Sex: Female

DRUGS (1)
  1. REVLIMID [Suspect]
     Active Substance: LENALIDOMIDE
     Indication: PLASMA CELL MYELOMA
     Route: 048
     Dates: start: 20200902, end: 20210212

REACTIONS (3)
  - COVID-19 pneumonia [None]
  - Acute respiratory failure [None]
  - Clostridium difficile colitis [None]

NARRATIVE: CASE EVENT DATE: 20210427
